FAERS Safety Report 6942494-3 (Version None)
Quarter: 2010Q3

REPORT INFORMATION
  Report Type: 
  Country: None (occurrence: None)
  Receive Date: 20100826
  Receipt Date: 20100714
  Transmission Date: 20110219
  Serious: Yes (Death, Other)
  Sender: FDA-Public Use
  Company Number: US-BAXTER-2010BH003457

PATIENT
  Age: 76 Year
  Sex: Female

DRUGS (1)
  1. HEPARIN SODIUM INJECTION [Suspect]
     Indication: PRODUCT USED FOR UNKNOWN INDICATION
     Route: 042
     Dates: start: 20071101, end: 20080301

REACTIONS (4)
  - DEHYDRATION [None]
  - PNEUMONIA [None]
  - SEPSIS [None]
  - THROMBOSIS [None]
